FAERS Safety Report 9692609 (Version 1)
Quarter: 2013Q4

REPORT INFORMATION
  Report Type: Spontaneous
  Country: US (occurrence: None)
  Receive Date: 20131115
  Receipt Date: 20131115
  Transmission Date: 20140711
  Serious: No
  Sender: FDA-Public Use
  Company Number: None

PATIENT
  Age: 70 Year
  Sex: Male
  Weight: 113.4 kg

DRUGS (1)
  1. LEVOFLOXACIN 500 MG ?? [Suspect]
     Indication: COUGH
     Dosage: 7 PILLS
     Route: 048
     Dates: start: 20131021, end: 20131029

REACTIONS (1)
  - Tendon pain [None]
